FAERS Safety Report 5399983-5 (Version None)
Quarter: 2007Q3

REPORT INFORMATION
  Report Type: 
  Country: None (occurrence: None)
  Receive Date: 20070726
  Receipt Date: 20070726
  Transmission Date: 20080115
  Serious: Yes (Hospitalization)
  Sender: FDA-Public Use
  Company Number: None

PATIENT
  Age: 52 Year
  Sex: Female
  Weight: 84.369 kg

DRUGS (6)
  1. COENZYME Q10 100 MG [Suspect]
     Indication: BREAST CANCER
     Dosage: 1 TAB PO TID
     Route: 048
     Dates: start: 20050625, end: 20051213
  2. COENZYME Q10 100 MG [Suspect]
     Indication: FATIGUE
     Dosage: 1 TAB PO TID
     Route: 048
     Dates: start: 20050625, end: 20051213
  3. ARIMIDEX [Concomitant]
  4. LEXAPRO [Concomitant]
  5. CENTRUM [Concomitant]
  6. PREMPRO [Concomitant]

REACTIONS (1)
  - APPENDICITIS PERFORATED [None]
